FAERS Safety Report 16446126 (Version 1)
Quarter: 2019Q2

REPORT INFORMATION
  Report Type: Spontaneous
  Country: US (occurrence: US)
  Receive Date: 20190618
  Receipt Date: 20190618
  Transmission Date: 20190711
  Serious: No
  Sender: FDA-Public Use
  Company Number: US-TARO-2019TAR00272

PATIENT
  Sex: Female
  Weight: 61.22 kg

DRUGS (9)
  1. NORTRIPTYLINE HCL CAPSULES 25 MG [Suspect]
     Active Substance: NORTRIPTYLINE HYDROCHLORIDE
     Dosage: 25 MG, 1X/DAY (25 MG TOTAL)
     Route: 048
     Dates: start: 20190330
  2. NORTRIPTYLINE HCL CAPSULES 50 MG [Suspect]
     Active Substance: NORTRIPTYLINE HYDROCHLORIDE
     Indication: CYCLIC VOMITING SYNDROME
     Dosage: 50 MG, 1X/DAY (75 MG TOTAL)
     Route: 048
     Dates: start: 2018, end: 2018
  3. EMEND [Concomitant]
     Active Substance: APREPITANT
     Dosage: 80 MG, 1X/DAY
     Dates: start: 201902
  4. NORTRIPTYLINE HCL CAPSULES 25 MG [Suspect]
     Active Substance: NORTRIPTYLINE HYDROCHLORIDE
     Indication: CYCLIC VOMITING SYNDROME
     Dosage: 25 MG, 1X/DAY (75 MG TOTAL - WITH 50 MG CAPSULE)
     Route: 048
     Dates: start: 2018, end: 2018
  5. NORTRIPTYLINE HCL CAPSULES 50 MG [Suspect]
     Active Substance: NORTRIPTYLINE HYDROCHLORIDE
     Dosage: 50 MG, 1X/DAY (75 MG TOTAL)
     Route: 048
     Dates: start: 20190319, end: 20190325
  6. NORTRIPTYLINE HCL CAPSULES 50 MG [Suspect]
     Active Substance: NORTRIPTYLINE HYDROCHLORIDE
     Dosage: 50 MG, 1X/DAY (50 MG TOTAL)
     Route: 048
     Dates: start: 20190326, end: 20190329
  7. NORTRIPTYLINE HCL CAPSULES 50 MG [Suspect]
     Active Substance: NORTRIPTYLINE HYDROCHLORIDE
     Dosage: 100 MG, 1X/DAY
     Route: 048
     Dates: start: 2018, end: 20190318
  8. AMITRIPTYLINE [Suspect]
     Active Substance: AMITRIPTYLINE
     Indication: CYCLIC VOMITING SYNDROME
     Dosage: UNK
     Dates: start: 2017, end: 2018
  9. NORTRIPTYLINE HCL CAPSULES 25 MG [Suspect]
     Active Substance: NORTRIPTYLINE HYDROCHLORIDE
     Dosage: 25 MG, 1X/DAY (75 MG TOTAL)
     Route: 048
     Dates: start: 20190319, end: 20190325

REACTIONS (3)
  - Urticaria [Not Recovered/Not Resolved]
  - Pruritus [Not Recovered/Not Resolved]
  - Off label use [Not Recovered/Not Resolved]

NARRATIVE: CASE EVENT DATE: 2018
